FAERS Safety Report 17445111 (Version 1)
Quarter: 2020Q1

REPORT INFORMATION
  Report Type: Spontaneous
  Country: US (occurrence: US)
  Receive Date: 20200221
  Receipt Date: 20200221
  Transmission Date: 20200409
  Serious: No
  Sender: FDA-Public Use
  Company Number: US-PFIZER INC-2019288064

PATIENT
  Age: 50 Year
  Sex: Female
  Weight: 48.98 kg

DRUGS (12)
  1. AMITIZA [Concomitant]
     Active Substance: LUBIPROSTONE
     Dosage: 24 UG, 2X/DAY
  2. DRAMAMINE [Concomitant]
     Active Substance: DIMENHYDRINATE
     Indication: DIZZINESS
     Dosage: UNK UNK, AS NEEDED
  3. PREMPRO [Suspect]
     Active Substance: ESTROGENS, CONJUGATED\MEDROXYPROGESTERONE ACETATE
     Indication: MENOPAUSE
     Dosage: UNK, 1X/DAY (0.625-2.5 MG ONCE A DAY)
     Dates: start: 20190809, end: 20191127
  4. PREMPRO [Suspect]
     Active Substance: ESTROGENS, CONJUGATED\MEDROXYPROGESTERONE ACETATE
     Dosage: UNK, 1X/DAY (0.625-2.5 MG ONCE A DAY)
     Dates: start: 20191127
  5. AZILECT [Concomitant]
     Active Substance: RASAGILINE MESYLATE
     Dosage: 0.5 MG, 1X/DAY
  6. WELLBUTRIN XL [Concomitant]
     Active Substance: BUPROPION HYDROCHLORIDE
     Dosage: 300 MG, 1X/DAY
  7. CLONAZEPAM. [Concomitant]
     Active Substance: CLONAZEPAM
     Dosage: 1.5 MG, 1X/DAY ( 1 AT BED)
  8. SINEMET [Concomitant]
     Active Substance: CARBIDOPA\LEVODOPA
     Dosage: UNK (25/100MG: 5XA DAY (3 HRS))
  9. COMTAN [Concomitant]
     Active Substance: ENTACAPONE
     Dosage: 200 MG, UNK (X A DAY (3 HRS))
  10. ALEVE [Concomitant]
     Active Substance: NAPROXEN SODIUM
     Indication: PAIN
     Dosage: UNK UNK, AS NEEDED
  11. TIGAN [Concomitant]
     Active Substance: TRIMETHOBENZAMIDE HYDROCHLORIDE
     Dosage: 300 MG, 2X/DAY
  12. INBRIJA [Concomitant]
     Active Substance: LEVODOPA
     Dosage: 42 MG, AS NEEDED

REACTIONS (4)
  - Tremor [Not Recovered/Not Resolved]
  - Breast tenderness [Not Recovered/Not Resolved]
  - Metrorrhagia [Recovered/Resolved]
  - Vascular pain [Not Recovered/Not Resolved]

NARRATIVE: CASE EVENT DATE: 20190809
